FAERS Safety Report 4510567-0 (Version None)
Quarter: 2004Q4

REPORT INFORMATION
  Report Type: 
  Country: None (occurrence: None)
  Receive Date: 20041122
  Receipt Date: 20041111
  Transmission Date: 20050328
  Serious: Yes (Other)
  Sender: FDA-Public Use
  Company Number: A-CH2004-07909

PATIENT
  Age: 66 Year
  Sex: Female
  Weight: 62 kg

DRUGS (4)
  1. TRACLEER [Suspect]
     Indication: PULMONARY HYPERTENSION
     Dosage: 62.5 MG, BID, ORAL
     Route: 048
     Dates: start: 20040301, end: 20040416
  2. PHENPROCOUMON (PHENPROCOUMON) [Concomitant]
  3. AMLODIPINE [Concomitant]
  4. HYDROCHLOROTHIAZID (HYDROCHLOROTHIAZIDE) [Concomitant]

REACTIONS (4)
  - ALANINE AMINOTRANSFERASE INCREASED [None]
  - ASPARTATE AMINOTRANSFERASE INCREASED [None]
  - BLOOD ALKALINE PHOSPHATASE INCREASED [None]
  - BLOOD BILIRUBIN INCREASED [None]
